FAERS Safety Report 24179087 (Version 1)
Quarter: 2024Q3

REPORT INFORMATION
  Report Type: Spontaneous
  Country: US (occurrence: None)
  Receive Date: 20240805
  Receipt Date: 20240805
  Transmission Date: 20241016
  Serious: Yes (Hospitalization)
  Sender: Public
  Company Number: None

PATIENT
  Age: 64 Year
  Sex: Female

DRUGS (35)
  1. CIMZIA [Suspect]
     Active Substance: CERTOLIZUMAB PEGOL
     Indication: Spinal osteoarthritis
     Dosage: FREQUENCY : MONTHLY;?
     Route: 058
     Dates: start: 20231206
  2. telmisertan [Concomitant]
  3. CHLORTHALIDONE [Suspect]
     Active Substance: CHLORTHALIDONE
  4. LISINOPRIL [Suspect]
     Active Substance: LISINOPRIL
  5. LEFLUNOMIDE [Suspect]
     Active Substance: LEFLUNOMIDE
  6. HYDROCORTISONE-ACETAMINOPHEN [Concomitant]
  7. MS CONTIN [Concomitant]
     Active Substance: MORPHINE SULFATE
  8. ELIQUIS [Concomitant]
     Active Substance: APIXABAN
  9. ENBREL [Concomitant]
     Active Substance: BENZYL ALCOHOL\ETANERCEPT
  10. VITAMIN B [Concomitant]
     Active Substance: VITAMIN B
  11. DOXYCYCLINE [Concomitant]
  12. GOLO [Concomitant]
  13. RINVOQ [Concomitant]
     Active Substance: UPADACITINIB
  14. AZITHROMYCIN [Concomitant]
     Active Substance: AZITHROMYCIN
  15. OXYBUTYNIN [Concomitant]
     Active Substance: OXYBUTYNIN\OXYBUTYNIN CHLORIDE
  16. COSENTYX [Concomitant]
     Active Substance: SECUKINUMAB
  17. VICODIN [Concomitant]
     Active Substance: ACETAMINOPHEN\HYDROCODONE BITARTRATE
  18. METHYLPHENIDATE [Concomitant]
     Active Substance: METHYLPHENIDATE
  19. NORVASC [Concomitant]
     Active Substance: AMLODIPINE BESYLATE
  20. KP VITAMIN B-12 [Concomitant]
  21. BIOTIN [Concomitant]
     Active Substance: BIOTIN
  22. AMITRIPTYLINE [Concomitant]
     Active Substance: AMITRIPTYLINE
  23. ASPIRIN [Concomitant]
     Active Substance: ASPIRIN
  24. FOLIC ACID [Concomitant]
     Active Substance: FOLIC ACID
  25. PREDNISONE [Concomitant]
     Active Substance: PREDNISONE
  26. LISINOPRIL [Concomitant]
     Active Substance: LISINOPRIL
  27. TRIAMCINOLONE [Concomitant]
     Active Substance: TRIAMCINOLONE
  28. LEFLUNOMIDE [Concomitant]
     Active Substance: LEFLUNOMIDE
  29. FLUTICASONE [Concomitant]
     Active Substance: FLUTICASONE
  30. METFORMIN [Concomitant]
     Active Substance: METFORMIN HYDROCHLORIDE
  31. BUPROPION [Concomitant]
     Active Substance: BUPROPION
  32. PREGABALIN [Concomitant]
     Active Substance: PREGABALIN
  33. PRAMOPEXOLE [Concomitant]
  34. MONTELUKAST [Concomitant]
     Active Substance: MONTELUKAST SODIUM
  35. DULOXETINE [Concomitant]
     Active Substance: DULOXETINE

REACTIONS (4)
  - Pancreatitis [None]
  - Encephalopathy [None]
  - Acute kidney injury [None]
  - Rhabdomyolysis [None]

NARRATIVE: CASE EVENT DATE: 20240717
